FAERS Safety Report 12470637 (Version 1)
Quarter: 2016Q2

REPORT INFORMATION
  Report Type: Spontaneous
  Country: US (occurrence: None)
  Receive Date: 20160615
  Receipt Date: 20160615
  Transmission Date: 20160815
  Serious: Yes (Other)
  Sender: FDA-Public Use
  Company Number: None

PATIENT
  Age: 35 Year
  Sex: Female
  Weight: 104.78 kg

DRUGS (10)
  1. TOPIRAMATE. [Suspect]
     Active Substance: TOPIRAMATE
     Indication: MIGRAINE
     Dosage: 1 IN AM AND 2 PM TAKEN BY MOUTH
     Route: 048
     Dates: start: 20160315, end: 20160607
  2. CYMBALTA [Concomitant]
     Active Substance: DULOXETINE HYDROCHLORIDE
  3. TOPIRAMATE. [Suspect]
     Active Substance: TOPIRAMATE
     Indication: FIBROMYALGIA
     Dosage: 1 IN AM AND 2 PM TAKEN BY MOUTH
     Route: 048
     Dates: start: 20160315, end: 20160607
  4. CLONIDINE. [Concomitant]
     Active Substance: CLONIDINE
  5. TOPIRAMATE. [Suspect]
     Active Substance: TOPIRAMATE
     Indication: PAIN
     Dosage: 1 IN AM AND 2 PM TAKEN BY MOUTH
     Route: 048
     Dates: start: 20160315, end: 20160607
  6. ADDERALL [Concomitant]
     Active Substance: AMPHETAMINE ASPARTATE\AMPHETAMINE SULFATE\DEXTROAMPHETAMINE SACCHARATE\DEXTROAMPHETAMINE SULFATE
  7. VITAMIN D3 [Concomitant]
     Active Substance: CHOLECALCIFEROL
  8. GLUCOSAMINE WITH CHONDROITIN [Concomitant]
  9. TRAMADOL. [Concomitant]
     Active Substance: TRAMADOL
  10. ESTROGEN [Concomitant]
     Active Substance: ESTRONE\SUS SCROFA OVARY

REACTIONS (12)
  - Gait disturbance [None]
  - Headache [None]
  - Muscle spasms [None]
  - Visual impairment [None]
  - Costochondritis [None]
  - Hyperhidrosis [None]
  - Pain of skin [None]
  - Pain [None]
  - Paraesthesia [None]
  - Nausea [None]
  - Muscle twitching [None]
  - Condition aggravated [None]

NARRATIVE: CASE EVENT DATE: 20160514
